FAERS Safety Report 18091991 (Version 1)
Quarter: 2020Q3

REPORT INFORMATION
  Report Type: Spontaneous
  Country: US (occurrence: US)
  Receive Date: 20200730
  Receipt Date: 20200730
  Transmission Date: 20201103
  Serious: No
  Sender: FDA-Public Use
  Company Number: None

PATIENT
  Age: 69 Year
  Sex: Male

DRUGS (1)
  1. TAZTIA XT [Suspect]
     Active Substance: DILTIAZEM HYDROCHLORIDE
     Dates: start: 20160212, end: 20160303

REACTIONS (2)
  - Thrombocytopenia [None]
  - Cystitis escherichia [None]

NARRATIVE: CASE EVENT DATE: 20160412
